FAERS Safety Report 18579182 (Version 1)
Quarter: 2020Q4

REPORT INFORMATION
  Report Type: Spontaneous
  Country: US (occurrence: US)
  Receive Date: 20201202
  Receipt Date: 20201202
  Transmission Date: 20210114
  Serious: No
  Sender: FDA-Public Use
  Company Number: None

PATIENT
  Age: 41 Year
  Sex: Male

DRUGS (1)
  1. ADALIMUMAB (ADALIMUMAB 40MG/0.8ML INJ, PEN, KIT) [Suspect]
     Active Substance: ADALIMUMAB
     Indication: RHEUMATIC DISORDER
     Dosage: ?          OTHER FREQUENCY:OTHER;?
     Route: 058
     Dates: start: 20170424, end: 20171028

REACTIONS (2)
  - Gastrointestinal pain [None]
  - Diarrhoea [None]

NARRATIVE: CASE EVENT DATE: 20171028
